FAERS Safety Report 6381326-1 (Version None)
Quarter: 2009Q3

REPORT INFORMATION
  Report Type: 
  Country: None (occurrence: None)
  Receive Date: 20090923
  Receipt Date: 20090908
  Transmission Date: 20100115
  Serious: Yes (Hospitalization)
  Sender: FDA-Public Use
  Company Number: 2009AL005888

PATIENT
  Age: 26 Year
  Sex: Male
  Weight: 53.3 kg

DRUGS (8)
  1. RIFAMPIN [Suspect]
     Indication: TUBERCULOSIS
     Dosage: 450 MG, QD;
  2. ACETAMINOPHEN [Concomitant]
  3. CEFTAZIDIME [Concomitant]
  4. ISONIAZID [Concomitant]
  5. ETHAMBUTOL HYDROCHLORIDE [Concomitant]
  6. PYRAZINAMIDE [Concomitant]
  7. STREPTOMYCIN [Concomitant]
  8. LEVOFLOXACIN [Concomitant]

REACTIONS (9)
  - CHOLESTASIS [None]
  - HYPERBILIRUBINAEMIA [None]
  - IMMUNOGLOBULINS INCREASED [None]
  - KIDNEY FIBROSIS [None]
  - LYMPHOCYTE STIMULATION TEST POSITIVE [None]
  - PROTEINURIA [None]
  - RENAL GLYCOSURIA [None]
  - RENAL IMPAIRMENT [None]
  - TUBULOINTERSTITIAL NEPHRITIS [None]
